FAERS Safety Report 8910509 (Version 1)
Quarter: 2012Q4

REPORT INFORMATION
  Report Type: 
  Country: US (occurrence: US)
  Receive Date: 20121115
  Receipt Date: 20121115
  Transmission Date: 20130627
  Serious: Yes (Other)
  Sender: FDA-Public Use
  Company Number: US-AMGEN-USASP2012063698

PATIENT
  Age: 53 Year
  Sex: Female
  Weight: 134.69 kg

DRUGS (6)
  1. ENBREL [Suspect]
     Indication: RHEUMATOID ARTHRITIS
     Dosage: 50 mg/ml, qwk
     Route: 058
     Dates: start: 20120810
  2. CELEXA                             /01400501/ [Concomitant]
     Dosage: 20 mg, qd
     Route: 048
  3. COMPAZINE                          /00013302/ [Concomitant]
     Dosage: 5 g, 1-2 times per day, PRN
     Route: 048
  4. TRAMADOL [Concomitant]
     Dosage: 50 mg, qd
     Route: 048
  5. METHOTREXATE SODIUM [Concomitant]
     Dosage: 2.5 mg, 4 times/wk
     Route: 048
  6. REGLAN                             /00041901/ [Concomitant]
     Dosage: 10 mg, 4 times per day PRN
     Route: 048

REACTIONS (3)
  - Diverticulitis [Recovered/Resolved]
  - Pyrexia [Not Recovered/Not Resolved]
  - Abdominal pain [Recovered/Resolved]
